FAERS Safety Report 7333235-9 (Version None)
Quarter: 2011Q1

REPORT INFORMATION
  Report Type: 
  Country: None (occurrence: None)
  Receive Date: 20110222
  Receipt Date: 20110208
  Transmission Date: 20110831
  Serious: Yes (Hospitalization, Other)
  Sender: FDA-Public Use
  Company Number: 2011AP000239

PATIENT
  Age: 74 Year
  Sex: Male

DRUGS (8)
  1. ASPIRIN [Concomitant]
  2. NICORANDIL (NICORANDIL) [Concomitant]
  3. CANDESARTAN CILEXETIL [Concomitant]
  4. CLARITHROMYCIN [Suspect]
     Indication: PRODUCT USED FOR UNKNOWN INDICATION
     Route: 048
     Dates: start: 20110121, end: 20110125
  5. ATORVASTATIN (ATORVASTATIN) [Concomitant]
  6. BISOPROLOL FUMARATE [Concomitant]
  7. SERTRALINE (SERTRALINE) [Concomitant]
  8. ISOSORBIDE MONONITRATE [Concomitant]

REACTIONS (5)
  - NODAL ARRHYTHMIA [None]
  - DYSPNOEA [None]
  - UROSEPSIS [None]
  - HEPATORENAL FAILURE [None]
  - CARDIOVASCULAR DISORDER [None]
